FAERS Safety Report 6547949-1 (Version None)
Quarter: 2010Q1

REPORT INFORMATION
  Report Type: 
  Country: None (occurrence: None)
  Receive Date: 20100124
  Receipt Date: 20091118
  Transmission Date: 20100710
  Serious: Yes (Hospitalization, Other)
  Sender: FDA-Public Use
  Company Number: US-ALEXION-A200900974

PATIENT

DRUGS (16)
  1. SOLIRIS [Suspect]
     Indication: PAROXYSMAL NOCTURNAL HAEMOGLOBINURIA
     Dosage: 600 MG, QWK
     Route: 042
     Dates: start: 20091021, end: 20091111
  2. SOLIRIS [Suspect]
     Dosage: 900 MG, UNK
     Route: 042
     Dates: start: 20091118
  3. FOLIC ACID [Concomitant]
     Dosage: 1 MG, QD
     Route: 048
  4. LEVOTHYROXINE SODIUM [Concomitant]
     Dosage: 50 UG, QD
     Route: 048
  5. NADOLOL [Concomitant]
     Dosage: 20 MG, QHS
     Route: 048
  6. PHENYTOIN SODIUM [Concomitant]
     Dosage: 200 MG, QHS
     Route: 048
  7. SERTRALINE HYDROCHLORIDE [Concomitant]
     Dosage: 50 MG, BID
     Route: 048
  8. TEMAZEPAM [Concomitant]
     Dosage: 15 MG, QHS
     Route: 048
  9. DANAZOL [Concomitant]
     Dosage: 100 MG, QD
  10. FLUTICASONE PROPIONATE [Concomitant]
     Dosage: UNK
     Route: 045
  11. GUAIFENESIN [Concomitant]
     Dosage: 600 MG, BID
     Route: 048
  12. LISINOPRIL [Concomitant]
     Dosage: 20 MG, BID
     Route: 048
  13. PANTOPRAZOLE SODIUM [Concomitant]
     Dosage: 40 MG, QD
     Route: 048
  14. ACETAMINOPHEN [Concomitant]
     Dosage: 650 MG, Q4H PRN
     Route: 048
  15. IPRATROPIUM BROMIDE [Concomitant]
     Dosage: 0.5 MG, Q6H PRN
     Route: 055
  16. ALBUTEROL [Concomitant]
     Dosage: 2.5 MG, Q6H PRN
     Route: 055

REACTIONS (3)
  - HAEMOGLOBIN DECREASED [None]
  - PNEUMONIA [None]
  - RHINORRHOEA [None]
